FAERS Safety Report 4990259-4 (Version None)
Quarter: 2006Q2

REPORT INFORMATION
  Report Type: 
  Country: None (occurrence: None)
  Receive Date: 20060503
  Receipt Date: 20060413
  Transmission Date: 20061013
  Serious: Yes (Other)
  Sender: FDA-Public Use
  Company Number: US-GLAXOSMITHKLINE-A0602134A

PATIENT
  Age: 62 Year
  Sex: Female

DRUGS (4)
  1. AVANDIA [Suspect]
     Indication: DRUG USE FOR UNKNOWN INDICATION
     Route: 048
     Dates: start: 20050701, end: 20051101
  2. NEXIUM [Concomitant]
  3. GLIPIZIDE [Concomitant]
  4. ENALAPRIL MALEATE [Concomitant]

REACTIONS (5)
  - DIABETIC RETINOPATHY [None]
  - HORMONE LEVEL ABNORMAL [None]
  - MACULAR OEDEMA [None]
  - RETINAL ANEURYSM [None]
  - RETINAL HAEMORRHAGE [None]
